FAERS Safety Report 7366406-6 (Version None)
Quarter: 2011Q1

REPORT INFORMATION
  Report Type: 
  Country: None (occurrence: None)
  Receive Date: 20110225
  Receipt Date: 20101129
  Transmission Date: 20110831
  Serious: Yes (Hospitalization)
  Sender: FDA-Public Use
  Company Number: 319175

PATIENT
  Age: 68 Year
  Sex: Female
  Weight: 52.2 kg

DRUGS (4)
  1. FENOFIBRATE [Concomitant]
  2. VICTOZA [Suspect]
     Indication: TYPE 2 DIABETES MELLITUS
     Dosage: 1.8 MG, QD, SUBCUTANEOUS
     Route: 058
     Dates: start: 20100801, end: 20101124
  3. LIPITOR [Concomitant]
  4. JANUVIA [Concomitant]

REACTIONS (1)
  - PANCREATITIS ACUTE [None]
